FAERS Safety Report 5722952-X (Version None)
Quarter: 2008Q2

REPORT INFORMATION
  Report Type: 
  Country: None (occurrence: None)
  Receive Date: 20080428
  Receipt Date: 20080428
  Transmission Date: 20081010
  Serious: No
  Sender: FDA-Public Use
  Company Number: None

PATIENT
  Age: 10 Year
  Sex: Male
  Weight: 20.4119 kg

DRUGS (1)
  1. BERTEK 0.125MG [Suspect]
     Indication: HYPOPLASTIC LEFT HEART SYNDROME
     Dosage: 1 TABLET DAILY

REACTIONS (2)
  - GASTROINTESTINAL INFECTION [None]
  - PHARMACEUTICAL PRODUCT COMPLAINT [None]
